FAERS Safety Report 4861100-5 (Version None)
Quarter: 2005Q4

REPORT INFORMATION
  Report Type: 
  Country: None (occurrence: None)
  Receive Date: 20051220
  Receipt Date: 20051215
  Transmission Date: 20060501
  Serious: Yes (Hospitalization)
  Sender: FDA-Public Use
  Company Number: CH-GLAXOSMITHKLINE-B0403986A

PATIENT
  Age: 83 Year
  Sex: Female
  Weight: 55 kg

DRUGS (31)
  1. AUGMENTIN [Suspect]
     Indication: DRUG USE FOR UNKNOWN INDICATION
     Dosage: 1.2G THREE TIMES PER DAY
     Route: 042
     Dates: start: 20050822, end: 20050828
  2. AUGMENTIN [Suspect]
     Dosage: 1G TWICE PER DAY
     Route: 048
     Dates: start: 20050829, end: 20050907
  3. PERFALGAN [Concomitant]
     Dosage: 1G FOUR TIMES PER DAY
     Route: 042
     Dates: start: 20050822, end: 20050823
  4. TEMESTA [Concomitant]
     Indication: DRUG USE FOR UNKNOWN INDICATION
     Dosage: 1MG TWICE PER DAY
     Dates: start: 20050823, end: 20050907
  5. DEROXAT [Concomitant]
     Indication: ANXIETY
     Dosage: 10MG PER DAY
     Route: 048
     Dates: end: 20051003
  6. PONSTAN [Concomitant]
     Dosage: 500MG THREE TIMES PER DAY
     Route: 048
     Dates: start: 20050823, end: 20050902
  7. NORVASC [Concomitant]
     Indication: ESSENTIAL HYPERTENSION
     Dosage: 5MG PER DAY
     Route: 048
     Dates: start: 20050825, end: 20050927
  8. TRAMAL [Concomitant]
     Dosage: 20DROP FOUR TIMES PER DAY
     Route: 048
     Dates: start: 20050827, end: 20050902
  9. ANTRA [Concomitant]
     Dosage: 40MG PER DAY
     Route: 048
     Dates: start: 20050827, end: 20050907
  10. DISTRANEURIN [Concomitant]
     Indication: DRUG USE FOR UNKNOWN INDICATION
     Dosage: 300MG THREE TIMES PER DAY
     Route: 048
     Dates: start: 20050829, end: 20050907
  11. FERRO-GRADUMET [Concomitant]
     Indication: DRUG USE FOR UNKNOWN INDICATION
     Dosage: 105MG PER DAY
     Route: 048
     Dates: start: 20050831, end: 20050907
  12. DIPYRONE TAB [Concomitant]
     Dosage: 500MG THREE TIMES PER DAY
     Route: 048
     Dates: start: 20050902, end: 20050908
  13. DAFLON [Concomitant]
     Indication: DRUG USE FOR UNKNOWN INDICATION
     Dosage: 500MG TWICE PER DAY
     Route: 048
     Dates: end: 20050927
  14. TOREM [Concomitant]
     Indication: DRUG USE FOR UNKNOWN INDICATION
     Dosage: 2.5MG PER DAY
     Route: 048
     Dates: end: 20050825
  15. ACETAMINOPHEN [Concomitant]
     Indication: DRUG USE FOR UNKNOWN INDICATION
     Dosage: 1G FOUR TIMES PER DAY
     Route: 048
     Dates: start: 20050824, end: 20050927
  16. ZANTAC [Concomitant]
     Indication: DRUG USE FOR UNKNOWN INDICATION
     Dosage: 150MG TWICE PER DAY
     Route: 065
     Dates: start: 20050823, end: 20050828
  17. ATROPA BELLADONNA [Concomitant]
     Indication: DRUG USE FOR UNKNOWN INDICATION
     Dosage: 20DROP FOUR TIMES PER DAY
     Route: 048
     Dates: start: 20050823, end: 20050828
  18. METOCLOPRAMIDE HYDROCHLORIDE [Concomitant]
     Indication: DRUG USE FOR UNKNOWN INDICATION
     Dosage: 10MG THREE TIMES PER DAY
     Route: 065
     Dates: start: 20050825, end: 20050930
  19. MOTILIUM [Concomitant]
     Indication: DRUG USE FOR UNKNOWN INDICATION
     Dosage: 10MG THREE TIMES PER DAY
     Dates: start: 20050826, end: 20050930
  20. OMEPRAZOLE [Concomitant]
     Indication: DRUG USE FOR UNKNOWN INDICATION
     Dosage: 40MG PER DAY
     Route: 048
     Dates: start: 20050927, end: 20051003
  21. HALDOL [Concomitant]
     Indication: DRUG USE FOR UNKNOWN INDICATION
     Dosage: .5MG THREE TIMES PER DAY
     Route: 048
     Dates: start: 20050828, end: 20050831
  22. SERESTA [Concomitant]
     Indication: DRUG USE FOR UNKNOWN INDICATION
     Dosage: 7.5MG PER DAY
     Route: 065
     Dates: start: 20051003, end: 20051012
  23. FENTANYL [Concomitant]
     Indication: DRUG USE FOR UNKNOWN INDICATION
     Route: 040
     Dates: start: 20050822, end: 20050822
  24. PROPOFOL [Concomitant]
     Indication: DRUG USE FOR UNKNOWN INDICATION
     Route: 042
     Dates: start: 20050822, end: 20050822
  25. EPHEDRINE [Concomitant]
     Indication: DRUG USE FOR UNKNOWN INDICATION
     Route: 040
     Dates: start: 20050822, end: 20050822
  26. NORADRENALINE BITARTRATE [Concomitant]
     Indication: DRUG USE FOR UNKNOWN INDICATION
     Route: 065
     Dates: start: 20050822, end: 20050822
  27. ROBINUL [Concomitant]
     Indication: DRUG USE FOR UNKNOWN INDICATION
     Route: 040
     Dates: start: 20050822, end: 20050822
  28. MORPHINE [Concomitant]
     Indication: DRUG USE FOR UNKNOWN INDICATION
     Route: 058
     Dates: start: 20050822, end: 20050825
  29. FRAXIPARINE [Concomitant]
     Indication: DRUG USE FOR UNKNOWN INDICATION
     Route: 058
     Dates: start: 20050822, end: 20050828
  30. BELOC [Concomitant]
     Indication: DRUG USE FOR UNKNOWN INDICATION
     Dosage: 10MG UNKNOWN
     Route: 042
     Dates: start: 20050822, end: 20050822
  31. ISOFLURANE [Concomitant]
     Indication: DRUG USE FOR UNKNOWN INDICATION
     Route: 055
     Dates: start: 20050822, end: 20050822

REACTIONS (5)
  - CHOLESTASIS [None]
  - CYTOLYTIC HEPATITIS [None]
  - HEPATIC TRAUMA [None]
  - JAUNDICE [None]
  - OBESITY [None]
